FAERS Safety Report 15135303 (Version 2)
Quarter: 2018Q3

REPORT INFORMATION
  Report Type: Spontaneous
  Country: US (occurrence: US)
  Receive Date: 20180712
  Receipt Date: 20180801
  Transmission Date: 20181010
  Serious: Yes (Hospitalization)
  Sender: FDA-Public Use
  Company Number: US-PFIZER INC-2018275719

PATIENT
  Age: 46 Year
  Sex: Female
  Weight: 90.7 kg

DRUGS (3)
  1. EFFEXOR XR [Suspect]
     Active Substance: VENLAFAXINE HYDROCHLORIDE
     Indication: HYPERSOMNIA
     Dosage: 75 MG, DAILY
     Route: 048
     Dates: start: 2014, end: 20180703
  2. EFFEXOR XR [Suspect]
     Active Substance: VENLAFAXINE HYDROCHLORIDE
     Indication: PREMATURE MENOPAUSE
     Dosage: 75 MG, UNK (EVERY DAY, THEN HALF OF THE CONTENTS FOR THE FIRST WEEK THEN 1/4 OF THE CAPSULE CONTENT)
     Route: 048
     Dates: start: 2018, end: 2018
  3. EFFEXOR XR [Suspect]
     Active Substance: VENLAFAXINE HYDROCHLORIDE
     Indication: HOT FLUSH

REACTIONS (13)
  - Fatigue [Unknown]
  - Depressed mood [Recovered/Resolved]
  - Product use in unapproved indication [Unknown]
  - Withdrawal syndrome [Not Recovered/Not Resolved]
  - Cerebral disorder [Not Recovered/Not Resolved]
  - Injury [Unknown]
  - Physical assault [Unknown]
  - Crying [Recovered/Resolved]
  - Facial bones fracture [Unknown]
  - Vomiting [Recovered/Resolved]
  - Nightmare [Recovered/Resolved]
  - Panic reaction [Unknown]
  - Fracture [Unknown]

NARRATIVE: CASE EVENT DATE: 2014
